FAERS Safety Report 9524565 (Version 2)
Quarter: 2013Q4

REPORT INFORMATION
  Report Type: Spontaneous
  Country: US (occurrence: US)
  Receive Date: 20130916
  Receipt Date: 20131008
  Transmission Date: 20140711
  Serious: No
  Sender: FDA-Public Use
  Company Number: US-PFIZER INC-2013261193

PATIENT
  Sex: Female

DRUGS (3)
  1. NORVASC [Suspect]
     Dosage: 5 MG
  2. NEURONTIN [Suspect]
     Dosage: 300 MG
  3. LIPITOR [Suspect]
     Dosage: 10 MG

REACTIONS (1)
  - Muscle strain [Unknown]
